FAERS Safety Report 6759453-6 (Version None)
Quarter: 2010Q2

REPORT INFORMATION
  Report Type: 
  Country: None (occurrence: None)
  Receive Date: 20100603
  Receipt Date: 20100519
  Transmission Date: 20101027
  Serious: Yes (Other)
  Sender: FDA-Public Use
  Company Number: 2010-1724

PATIENT
  Age: 11 Year
  Sex: Male

DRUGS (1)
  1. INCRELEX [Suspect]
     Indication: GROWTH HORMONE DEFICIENCY

REACTIONS (1)
  - DIPLOPIA [None]
